FAERS Safety Report 12224088 (Version 2)
Quarter: 2016Q2

REPORT INFORMATION
  Report Type: Spontaneous
  Country: JP (occurrence: JP)
  Receive Date: 20160330
  Receipt Date: 20160523
  Transmission Date: 20160815
  Serious: Yes (Other)
  Sender: FDA-Public Use
  Company Number: PHHY2016JP041675

PATIENT
  Age: 84 Year
  Sex: Male

DRUGS (8)
  1. DEPAS [Concomitant]
     Active Substance: ETIZOLAM
     Indication: PRODUCT USED FOR UNKNOWN INDICATION
     Dosage: UNK
     Route: 065
  2. AMLODIPINE [Concomitant]
     Active Substance: AMLODIPINE BESYLATE
     Indication: PRODUCT USED FOR UNKNOWN INDICATION
     Dosage: UNK
     Route: 065
  3. RIVASTACH [Suspect]
     Active Substance: RIVASTIGMINE
     Dosage: 9.5 MG/24HOURS (PATCH 10 CM2, 18 MG DAILY RIVASTIGMINE BASE) (CUT INTO HALVES)
     Route: 062
  4. GLIMEPIRIDE. [Concomitant]
     Active Substance: GLIMEPIRIDE
     Indication: PRODUCT USED FOR UNKNOWN INDICATION
     Dosage: UNK
     Route: 065
  5. JANUVIA [Concomitant]
     Active Substance: SITAGLIPTIN PHOSPHATE
     Indication: PRODUCT USED FOR UNKNOWN INDICATION
     Dosage: UNK
     Route: 065
  6. BELSOMRA [Concomitant]
     Active Substance: SUVOREXANT
     Indication: PRODUCT USED FOR UNKNOWN INDICATION
     Dosage: 15 MG, QD
     Route: 065
     Dates: end: 20160323
  7. RIVASTACH [Suspect]
     Active Substance: RIVASTIGMINE
     Dosage: 9.5 MG/24HOURS (PATCH 10 CM2, 18 MG DAILY RIVASTIGMINE BASE)
     Route: 062
     Dates: start: 20151221, end: 2016
  8. RIVASTACH [Suspect]
     Active Substance: RIVASTIGMINE
     Indication: DEMENTIA ALZHEIMER^S TYPE
     Dosage: 4.6 MG/24HOURS (PATCH 5 CM2, 09 MG DAILY RIVASTIGMINE BASE)
     Route: 062
     Dates: start: 20151124, end: 20151220

REACTIONS (4)
  - Dementia [Unknown]
  - Therapeutic response increased [Unknown]
  - Apathy [Unknown]
  - Drug prescribing error [Unknown]

NARRATIVE: CASE EVENT DATE: 20160215
